FAERS Safety Report 16645690 (Version 1)
Quarter: 2019Q3

REPORT INFORMATION
  Report Type: Spontaneous
  Country: TR (occurrence: TR)
  Receive Date: 20190730
  Receipt Date: 20190730
  Transmission Date: 20191004
  Serious: Yes (Death, Hospitalization, Other)
  Sender: FDA-Public Use
  Company Number: TR-TEVA-2019-TR-1083964

PATIENT
  Age: 65 Year
  Sex: Male

DRUGS (14)
  1. RITUXIMAB. [Suspect]
     Active Substance: RITUXIMAB
     Indication: NON-HODGKIN^S LYMPHOMA
     Dosage: PART OF R-CHOP REGIMEN; RECEIVED SIX CYCLES
     Route: 065
  2. IFOSFAMIDE. [Suspect]
     Active Substance: IFOSFAMIDE
     Indication: NON-HODGKIN^S LYMPHOMA
     Dosage: PART OF ICE REGIMEN; RECEIVED TWO CYCLES
     Route: 065
  3. PIPERACILLIN/TAZOBACTAM [Concomitant]
     Active Substance: PIPERACILLIN SODIUM\TAZOBACTAM SODIUM
     Indication: EVIDENCE BASED TREATMENT
     Route: 065
  4. PREDNISOLONE. [Suspect]
     Active Substance: PREDNISOLONE
     Indication: NON-HODGKIN^S LYMPHOMA
     Dosage: PART OF R-CHOP REGIMEN; RECEIVED SIX CYCLES
     Route: 065
  5. CARBOPLATIN. [Suspect]
     Active Substance: CARBOPLATIN
     Indication: NON-HODGKIN^S LYMPHOMA
     Dosage: PART OF ICE REGIMEN; RECEIVED TWO CYCLES
     Route: 065
  6. CYTOSINE ARABINOSIDE [Suspect]
     Active Substance: CYTARABINE
     Indication: NON-HODGKIN^S LYMPHOMA
     Dosage: PART OF BEAM REGIMEN
     Route: 065
  7. DOXORUBICIN [Suspect]
     Active Substance: DOXORUBICIN
     Indication: NON-HODGKIN^S LYMPHOMA
     Dosage: PART OF R-CHOP REGIMEN; RECEIVED SIX CYCLES
     Route: 065
  8. ETOPOSIDE. [Suspect]
     Active Substance: ETOPOSIDE
     Indication: NON-HODGKIN^S LYMPHOMA
     Dosage: PART OF ICE REGIMEN; RECEIVED TWO CYCLES
     Route: 065
  9. ETOPOSIDE. [Suspect]
     Active Substance: ETOPOSIDE
     Dosage: PART OF BEAM REGIMEN
     Route: 065
  10. CARMUSTINE. [Suspect]
     Active Substance: CARMUSTINE
     Indication: NON-HODGKIN^S LYMPHOMA
     Dosage: PART OF BEAM REGIMEN
     Route: 065
  11. CYCLOPHOSPHAMIDE. [Suspect]
     Active Substance: CYCLOPHOSPHAMIDE
     Indication: NON-HODGKIN^S LYMPHOMA
     Dosage: PART OF R-CHOP REGIMEN; RECEIVED SIX CYCLES
     Route: 065
  12. MELPHALAN. [Suspect]
     Active Substance: MELPHALAN
     Indication: NON-HODGKIN^S LYMPHOMA
     Dosage: PART OF BEAM REGIMEN
     Route: 065
  13. FLUCONAZOLE. [Concomitant]
     Active Substance: FLUCONAZOLE
     Indication: ANTIFUNGAL PROPHYLAXIS
     Route: 065
  14. VINCRISTINE [Suspect]
     Active Substance: VINCRISTINE
     Indication: NON-HODGKIN^S LYMPHOMA
     Dosage: PART OF R-CHOP REGIMEN; RECEIVED SIX CYCLES
     Route: 065

REACTIONS (13)
  - Upper gastrointestinal haemorrhage [Fatal]
  - Gastrointestinal necrosis [Fatal]
  - Ileus [Fatal]
  - Klebsiella infection [Unknown]
  - Lymphopenia [Recovered/Resolved]
  - Febrile neutropenia [Fatal]
  - Bronchopulmonary aspergillosis [Unknown]
  - Aspergillus infection [Fatal]
  - Intestinal perforation [Fatal]
  - Intestinal ulcer [Fatal]
  - Acute abdomen [Fatal]
  - Neutropenia [Recovered/Resolved]
  - Gastrointestinal fungal infection [Fatal]
